FAERS Safety Report 9705818 (Version 2)
Quarter: 2013Q4

REPORT INFORMATION
  Report Type: Spontaneous
  Country: US (occurrence: US)
  Receive Date: 20131122
  Receipt Date: 20131122
  Transmission Date: 20140711
  Serious: No
  Sender: FDA-Public Use
  Company Number: US-GILEAD-2008-0017935

PATIENT
  Sex: Female
  Weight: 82.1 kg

DRUGS (11)
  1. LETAIRIS [Suspect]
     Indication: PULMONARY ARTERIAL HYPERTENSION
     Route: 048
     Dates: start: 20080807
  2. AMOXICILLIN SUSPENSION [Concomitant]
     Route: 048
  3. ATIVAN [Concomitant]
  4. GLIPIZIDE [Concomitant]
  5. REMERON SOL-TAB [Concomitant]
  6. ACCUPRIL [Concomitant]
  7. MAGNESIUM CITRATE SOLUTION [Concomitant]
  8. COLACE [Concomitant]
  9. CALCIUM + D [Concomitant]
  10. METAMUCIL [Concomitant]
  11. TYLENOL [Concomitant]

REACTIONS (2)
  - Palpitations [Recovered/Resolved]
  - Constipation [Unknown]
